FAERS Safety Report 9739346 (Version 1)
Quarter: 2013Q4

REPORT INFORMATION
  Report Type: Spontaneous
  Country: US (occurrence: US)
  Receive Date: 20131209
  Receipt Date: 20131209
  Transmission Date: 20140711
  Serious: No
  Sender: FDA-Public Use
  Company Number: US-009507513-1311USA010222

PATIENT
  Sex: Male

DRUGS (8)
  1. VICTRELIS [Suspect]
     Indication: HEPATITIS C
     Dosage: 800 MG, TID
     Route: 048
     Dates: start: 201309
  2. PEGASYS [Suspect]
  3. RIBAVIRIN [Suspect]
  4. TEMAZEPAM [Concomitant]
  5. PROTONIX [Concomitant]
  6. LISOPRIL [Concomitant]
  7. BISOPROLOL [Concomitant]
  8. MELOXICAM [Concomitant]

REACTIONS (2)
  - Pain [Not Recovered/Not Resolved]
  - Rash [Not Recovered/Not Resolved]
